FAERS Safety Report 12272692 (Version 1)
Quarter: 2016Q2

REPORT INFORMATION
  Report Type: Spontaneous
  Country: BA (occurrence: BA)
  Receive Date: 20160415
  Receipt Date: 20160415
  Transmission Date: 20160815
  Serious: Yes (Other)
  Sender: FDA-Public Use
  Company Number: BA-BAYER-2016-066494

PATIENT
  Sex: Male

DRUGS (7)
  1. BISOPROLOL [Concomitant]
     Active Substance: BISOPROLOL
     Dosage: 5 MG, BID
  2. HYDROCHLOROTHIAZIDE. [Concomitant]
     Active Substance: HYDROCHLOROTHIAZIDE
     Dosage: 12.5 MG, QD
  3. BISOPROLOL [Concomitant]
     Active Substance: BISOPROLOL
     Dosage: 5 MG, UNK
  4. ASPIRIN PROTECT [Suspect]
     Active Substance: ASPIRIN
     Indication: MYOCARDIAL INFARCTION
     Dosage: 100 MG, HS
  5. ASPIRIN PROTECT [Suspect]
     Active Substance: ASPIRIN
     Indication: VARICOSE VEIN
     Dosage: 100 MG, QOD
  6. LISINOPRIL. [Concomitant]
     Active Substance: LISINOPRIL
     Dosage: 10 MG, QD
  7. NTG [Concomitant]
     Active Substance: NITROGLYCERIN
     Dosage: 2.5 MG, UNK

REACTIONS (1)
  - Thrombocytopenia [Recovered/Resolved]
